FAERS Safety Report 9710234 (Version 2)
Quarter: 2013Q4

REPORT INFORMATION
  Report Type: Other
  Country: IT (occurrence: IT)
  Receive Date: 20131126
  Receipt Date: 20131126
  Transmission Date: 20140711
  Serious: Yes (Disabling)
  Sender: FDA-Public Use
  Company Number: IT-TAKEDA-TIF2013A00024

PATIENT
  Sex: 0

DRUGS (3)
  1. ACTOS [Suspect]
     Indication: TYPE 2 DIABETES MELLITUS
     Route: 048
     Dates: start: 20110121, end: 20130109
  2. SIMVASTATIN [Concomitant]
     Dosage: 20 MG, UNK
     Route: 048
  3. LOSARTAN [Concomitant]
     Dosage: 50 MG, UNK
     Route: 048

REACTIONS (2)
  - Bladder neoplasm [Recovered/Resolved]
  - Haematuria [Unknown]
